FAERS Safety Report 14980044 (Version 2)
Quarter: 2018Q2

REPORT INFORMATION
  Report Type: Report from Study
  Country: MX (occurrence: MX)
  Receive Date: 20180606
  Receipt Date: 20180621
  Transmission Date: 20180711
  Serious: Yes (Other)
  Sender: FDA-Public Use
  Company Number: MX-BAYER-2018-083215

PATIENT
  Age: 41 Year
  Sex: Male
  Weight: 49 kg

DRUGS (15)
  1. NEXAVAR [Suspect]
     Active Substance: SORAFENIB
     Indication: HEPATOCELLULAR CARCINOMA
     Dosage: 600 MG, QD
     Dates: start: 20171013
  2. LOPERAMIDE [Concomitant]
     Active Substance: LOPERAMIDE
     Indication: DIARRHOEA
     Dosage: UNK
  3. NEXAVAR [Suspect]
     Active Substance: SORAFENIB
     Indication: HEPATOCELLULAR CARCINOMA
     Dosage: 200 MG, BID
     Dates: start: 20180511
  4. OMEPRAZOLE. [Concomitant]
     Active Substance: OMEPRAZOLE
     Indication: ABDOMINAL PAIN UPPER
  5. OMEPRAZOLE. [Concomitant]
     Active Substance: OMEPRAZOLE
     Indication: NAUSEA
  6. OMEPRAZOLE. [Concomitant]
     Active Substance: OMEPRAZOLE
     Indication: DIARRHOEA
  7. OMEPRAZOLE. [Concomitant]
     Active Substance: OMEPRAZOLE
     Indication: VOMITING
  8. GELCLAIR [Concomitant]
  9. NEXAVAR [Suspect]
     Active Substance: SORAFENIB
     Indication: HEPATOCELLULAR CARCINOMA
     Dosage: 600 MG, QD
  10. BEPANTHEN [Concomitant]
  11. NEXAVAR [Suspect]
     Active Substance: SORAFENIB
     Indication: HEPATOCELLULAR CARCINOMA
     Dosage: 200 MG, BID
  12. TRAMADOL. [Concomitant]
     Active Substance: TRAMADOL
     Indication: PAIN
     Dosage: UNK
  13. PREGABALIN. [Concomitant]
     Active Substance: PREGABALIN
  14. METOCLOPRAMIDE. [Concomitant]
     Active Substance: METOCLOPRAMIDE
  15. OMEPRAZOLE. [Concomitant]
     Active Substance: OMEPRAZOLE
     Indication: FEEDING DISORDER

REACTIONS (37)
  - Urticaria [Recovering/Resolving]
  - Vomiting [None]
  - Rash [None]
  - Abdominal pain upper [None]
  - Headache [Not Recovered/Not Resolved]
  - Pain in extremity [Not Recovered/Not Resolved]
  - Nasopharyngitis [Not Recovered/Not Resolved]
  - Insomnia [Recovered/Resolved]
  - Feeling hot [Not Recovered/Not Resolved]
  - Discomfort [Not Recovered/Not Resolved]
  - Feeding disorder [Not Recovered/Not Resolved]
  - Gait disturbance [Not Recovered/Not Resolved]
  - Poor quality sleep [None]
  - Underweight [Recovering/Resolving]
  - Feeling of despair [Not Recovered/Not Resolved]
  - Depression [Not Recovered/Not Resolved]
  - Oral discomfort [None]
  - Flushing [Not Recovered/Not Resolved]
  - Subcutaneous abscess [Recovering/Resolving]
  - Paraesthesia [Not Recovered/Not Resolved]
  - Discomfort [Not Recovered/Not Resolved]
  - Loss of personal independence in daily activities [None]
  - Dermatitis [Recovering/Resolving]
  - Epigastric discomfort [None]
  - Urticaria [None]
  - Pain [Not Recovered/Not Resolved]
  - Fatigue [Not Recovered/Not Resolved]
  - Product prescribing issue [Not Recovered/Not Resolved]
  - Abscess [None]
  - Wound complication [None]
  - Nervousness [Not Recovered/Not Resolved]
  - Nausea [None]
  - Skin exfoliation [Not Recovered/Not Resolved]
  - Hepatic pain [Recovered/Resolved]
  - Feeding disorder [None]
  - Pain of skin [Not Recovered/Not Resolved]
  - Abdominal pain upper [Not Recovered/Not Resolved]

NARRATIVE: CASE EVENT DATE: 20171013
